FAERS Safety Report 5981952-5 (Version None)
Quarter: 2008Q4

REPORT INFORMATION
  Report Type: 
  Country: None (occurrence: None)
  Receive Date: 20081202
  Receipt Date: 20081117
  Transmission Date: 20090506
  Serious: Yes (Hospitalization)
  Sender: FDA-Public Use
  Company Number: KV200800272

PATIENT
  Age: 52 Year
  Sex: Female
  Weight: 85.3 kg

DRUGS (4)
  1. MORPHINE SULFATE [Suspect]
     Indication: ARTHRALGIA
     Dosage: 15 MG, 2 TABS QD, ORAL
     Route: 048
     Dates: start: 20081003
  2. TEGRETOL [Concomitant]
  3. COUMADIN /00014802/ (WARFARIN SODIUM), 10 MG [Concomitant]
  4. BABY ASPIRIN (ACETYLSALICYLIC ACID) , 81 MG [Concomitant]

REACTIONS (4)
  - DRY MOUTH [None]
  - HEART RATE DECREASED [None]
  - NAUSEA [None]
  - SYNCOPE [None]
